FAERS Safety Report 18782240 (Version 1)
Quarter: 2021Q1

REPORT INFORMATION
  Report Type: Spontaneous
  Country: US (occurrence: US)
  Receive Date: 20210125
  Receipt Date: 20210125
  Transmission Date: 20210419
  Serious: No
  Sender: FDA-Public Use
  Company Number: US-ALLERGAN-2007713US

PATIENT
  Sex: Female

DRUGS (5)
  1. RESTASIS [Suspect]
     Active Substance: CYCLOSPORINE
     Dosage: UNK, SKIPPED A DAY OR SO
     Route: 047
     Dates: start: 201908
  2. PRESERVATIVE FREE FRESHKOTE [Concomitant]
     Indication: DRY EYE
     Route: 047
  3. RESTASIS [Suspect]
     Active Substance: CYCLOSPORINE
     Indication: DRY EYE
     Dosage: 2 GTT, BID
     Route: 047
     Dates: start: 201908, end: 201910
  4. REFRESH OPTIVE [Suspect]
     Active Substance: CARBOXYMETHYLCELLULOSE SODIUM\GLYCERIN
     Indication: DRY EYE
     Dosage: UNK, PRN
     Route: 047
  5. XIIDRA [Concomitant]
     Active Substance: LIFITEGRAST
     Indication: DRY EYE
     Route: 047

REACTIONS (7)
  - Eye inflammation [Recovered/Resolved]
  - Erythema [Recovered/Resolved]
  - Eye pruritus [Recovered/Resolved]
  - Skin exfoliation [Recovered/Resolved]
  - Eye irritation [Recovered/Resolved]
  - Drug hypersensitivity [Recovered/Resolved]
  - Inappropriate schedule of product administration [Unknown]
